FAERS Safety Report 9080355 (Version 1)
Quarter: 2013Q1

REPORT INFORMATION
  Report Type: Report from Study
  Country: US (occurrence: US)
  Receive Date: 20130130
  Receipt Date: 20130130
  Transmission Date: 20140127
  Serious: No
  Sender: FDA-Public Use
  Company Number: US-ABBOTT-12P-163-0968276-00

PATIENT
  Age: 57 Year
  Sex: Male

DRUGS (4)
  1. HUMIRA 40 MG/0.8 ML PEN [Suspect]
     Indication: PSORIASIS
     Dates: start: 2007, end: 2007
  2. HUMIRA 40 MG/0.8 ML PEN [Suspect]
     Dates: start: 201208
  3. DIABETES PILLS [Concomitant]
     Indication: DIABETES MELLITUS
  4. HIGH BLOOD PRESSURE PILLS [Concomitant]
     Indication: HYPERTENSION

REACTIONS (1)
  - Psoriasis [Not Recovered/Not Resolved]
